FAERS Safety Report 8167101-6 (Version None)
Quarter: 2012Q1

REPORT INFORMATION
  Report Type: 
  Country: None (occurrence: None)
  Receive Date: 20120227
  Receipt Date: 20120216
  Transmission Date: 20120608
  Serious: Yes (Hospitalization, Other)
  Sender: FDA-Public Use
  Company Number: US-BAYER-2011-033123

PATIENT
  Age: 17 Year
  Sex: Female
  Weight: 64 kg

DRUGS (8)
  1. YAZ [Suspect]
     Indication: CONTRACEPTION
     Dosage: UNK
     Dates: start: 20060101, end: 20060701
  2. YASMIN [Suspect]
  3. NAPROXEN (ALEVE) [Concomitant]
     Dosage: UNK
     Dates: start: 20020101
  4. IBUPROFEN (ADVIL) [Concomitant]
     Dosage: UNK
     Dates: start: 20020101
  5. MAGNESIUM HYDROXIDE TAB [Concomitant]
     Dosage: UNK
     Route: 048
     Dates: start: 20060719
  6. PHENERGAN [Concomitant]
     Dosage: UNK
     Route: 048
     Dates: start: 20060719
  7. MOTRIN [Concomitant]
     Dosage: UNK
     Dates: start: 20020101
  8. ZANTAC [Concomitant]
     Dosage: UNK
     Route: 048
     Dates: start: 20060719

REACTIONS (11)
  - INJURY [None]
  - PAIN [None]
  - PULMONARY EMBOLISM [None]
  - CEREBROVASCULAR ACCIDENT [None]
  - ANXIETY [None]
  - MYOCARDIAL INFARCTION [None]
  - GALLBLADDER DISORDER [None]
  - FEAR [None]
  - DEEP VEIN THROMBOSIS [None]
  - MENTAL DISORDER [None]
  - ANHEDONIA [None]
